FAERS Safety Report 25885066 (Version 1)
Quarter: 2025Q4

REPORT INFORMATION
  Report Type: Spontaneous
  Country: US (occurrence: US)
  Receive Date: 20251006
  Receipt Date: 20251006
  Transmission Date: 20260117
  Serious: No
  Sender: RANBAXY
  Company Number: US-MIMS-SUN-2025-USA-53172

PATIENT
  Sex: Female
  Weight: 130 kg

DRUGS (1)
  1. CEQUA [Suspect]
     Active Substance: CYCLOSPORINE
     Indication: Product used for unknown indication
     Dosage: 3 MILLIGRAM
     Route: 065

REACTIONS (2)
  - Product dose omission issue [Unknown]
  - Therapeutic response unexpected [Unknown]
